FAERS Safety Report 23765265 (Version 1)
Quarter: 2024Q2

REPORT INFORMATION
  Report Type: Report from Study
  Country: NL (occurrence: NL)
  Receive Date: 20240420
  Receipt Date: 20240420
  Transmission Date: 20240716
  Serious: Yes (Hospitalization)
  Sender: FDA-Public Use
  Company Number: NL-ABBVIE-21K-114-4029964-00

PATIENT
  Age: 77 Year
  Sex: Female

DRUGS (8)
  1. CARBIDOPA\LEVODOPA [Suspect]
     Active Substance: CARBIDOPA\LEVODOPA
     Indication: Parkinson^s disease
     Dosage: MD: 6.0ML, CD: 3.1ML/H, ED: 2.0ML, CND: 1.8ML/H, END: 2.0ML
     Route: 050
     Dates: start: 20240111, end: 20240111
  2. CARBIDOPA\LEVODOPA [Suspect]
     Active Substance: CARBIDOPA\LEVODOPA
     Dosage: MD: 8 ML, CD: 2.8 ML/H, ED: 2 ML?LAST ADMIN DATE: 2021
     Route: 050
     Dates: start: 20210726
  3. CARBIDOPA\LEVODOPA [Suspect]
     Active Substance: CARBIDOPA\LEVODOPA
     Dosage: MD: 9 ML, CD: 3 ML/H, ED: 2 ML
     Route: 050
     Dates: start: 20240411, end: 20240417
  4. CARBIDOPA\LEVODOPA [Suspect]
     Active Substance: CARBIDOPA\LEVODOPA
     Dosage: MD: 6.0 ML, CD: 3.0 ML/H, ED: 2.0 ML, CND: 1.5 ML/H, ED: 2.0 ML?LAST ADMIN DATE: 2021
     Route: 050
     Dates: start: 20210726
  5. CARBIDOPA\LEVODOPA [Suspect]
     Active Substance: CARBIDOPA\LEVODOPA
     Dosage: MD: 6.0 ML, CD: 3.2 ML/H, ED: 2.0 ML, CND: 1.5 ML/H, ED: 2.0 ML?REMAINS AT 24 HOURS
     Route: 050
     Dates: start: 20240417
  6. CARBIDOPA\LEVODOPA [Suspect]
     Active Substance: CARBIDOPA\LEVODOPA
     Dosage: END: 2.0 ML, CND: 1.8 ML/H
     Route: 050
     Dates: start: 2021, end: 2021
  7. CARBIDOPA\LEVODOPA [Suspect]
     Active Substance: CARBIDOPA\LEVODOPA
     Dosage: MD 9.0 ML CD 3.2 ML/H ED 2.0 ML?GOES TO 16 HOURS
     Route: 050
     Dates: start: 2021
  8. LEVODOPA [Concomitant]
     Active Substance: LEVODOPA
     Indication: Product used for unknown indication
     Route: 048

REACTIONS (26)
  - Fall [Recovered/Resolved]
  - Emotional disorder [Not Recovered/Not Resolved]
  - Suspiciousness [Not Recovered/Not Resolved]
  - Abnormal faeces [Recovered/Resolved]
  - Stoma site pain [Unknown]
  - Hallucination [Not Recovered/Not Resolved]
  - On and off phenomenon [Not Recovered/Not Resolved]
  - Cognitive disorder [Not Recovered/Not Resolved]
  - Reduced facial expression [Not Recovered/Not Resolved]
  - Freezing phenomenon [Not Recovered/Not Resolved]
  - Dyskinesia [Not Recovered/Not Resolved]
  - Medical device site scab [Recovered/Resolved]
  - Stoma site oedema [Recovered/Resolved]
  - Muscle rigidity [Not Recovered/Not Resolved]
  - Restlessness [Not Recovered/Not Resolved]
  - Stress [Unknown]
  - Stoma site discharge [Recovered/Resolved]
  - Malaise [Not Recovered/Not Resolved]
  - Unevaluable event [Not Recovered/Not Resolved]
  - Mood altered [Not Recovered/Not Resolved]
  - Parkinson^s disease [Unknown]
  - Insomnia [Unknown]
  - Musculoskeletal stiffness [Not Recovered/Not Resolved]
  - Device difficult to use [Not Recovered/Not Resolved]
  - Muscle spasms [Not Recovered/Not Resolved]
  - Sitting disability [Not Recovered/Not Resolved]

NARRATIVE: CASE EVENT DATE: 20210101
